FAERS Safety Report 23022033 (Version 1)
Quarter: 2023Q4

REPORT INFORMATION
  Report Type: Spontaneous
  Country: ES (occurrence: ES)
  Receive Date: 20231003
  Receipt Date: 20231003
  Transmission Date: 20240110
  Serious: Yes (Other)
  Sender: FDA-Public Use
  Company Number: None

PATIENT
  Age: 65 Year
  Sex: Female
  Weight: 60 kg

DRUGS (6)
  1. EDOXABAN TOSYLATE [Suspect]
     Active Substance: EDOXABAN TOSYLATE
     Indication: Atrial fibrillation
     Dosage: 1 DF, QD (1 TABLET PER 24 HOURS)
     Route: 048
     Dates: start: 20230515, end: 20230907
  2. VALSARTAN HIDROCLOROTIAZIDA [Concomitant]
     Indication: Product used for unknown indication
     Dosage: 1 DF, QD (1 TABLET PER 24 HOURS)
     Route: 048
     Dates: start: 20221221
  3. ATORVASTATINA ABEX [Concomitant]
     Indication: Dyslipidaemia
     Dosage: 1 DF, QD (1 TABLET PER 24 HOURS)
     Route: 048
     Dates: start: 20220607, end: 20230907
  4. ESCITALOPRAM FLAS CINFA [Concomitant]
     Indication: Product used for unknown indication
     Dosage: 10 MG, QD (10 MG/ 24 HOURS)
     Route: 048
     Dates: start: 20190718
  5. OMEPRAZOL SANDOZ [OMEPRAZOLE] [Concomitant]
     Indication: Prophylaxis against gastrointestinal ulcer
     Dosage: 20 MG, QD (20 MG PER 24 HOURS)
     Route: 048
     Dates: start: 20200107
  6. RIVOTRIL [Concomitant]
     Active Substance: CLONAZEPAM
     Indication: Product used for unknown indication
     Dosage: 1 DF, QD (1 TABLET PER 24 HOURS)
     Route: 048
     Dates: start: 20221026

REACTIONS (3)
  - Hyperbilirubinaemia [Recovering/Resolving]
  - Blood alkaline phosphatase increased [Recovering/Resolving]
  - Hypertransaminasaemia [Recovering/Resolving]

NARRATIVE: CASE EVENT DATE: 20230904
